FAERS Safety Report 15813589 (Version 4)
Quarter: 2019Q2

REPORT INFORMATION
  Report Type: Spontaneous
  Country: JP (occurrence: JP)
  Receive Date: 20190111
  Receipt Date: 20190626
  Transmission Date: 20190711
  Serious: Yes (Other)
  Sender: FDA-Public Use
  Company Number: JP-JNJFOC-20190105468

PATIENT
  Age: 73 Year
  Sex: Male
  Weight: 65 kg

DRUGS (17)
  1. JARDIANCE [Concomitant]
     Active Substance: EMPAGLIFLOZIN
     Indication: TYPE 2 DIABETES MELLITUS
     Route: 048
     Dates: start: 20170418
  2. ZETIA [Concomitant]
     Active Substance: EZETIMIBE
     Route: 048
     Dates: start: 20171226
  3. AMARYL [Concomitant]
     Active Substance: GLIMEPIRIDE
     Route: 048
     Dates: start: 20180710, end: 20180904
  4. LOTRIGA [Concomitant]
     Active Substance: OMEGA-3-ACID ETHYL ESTERS
     Route: 048
     Dates: start: 20160517, end: 20171226
  5. TENELIA [Concomitant]
     Active Substance: TENELIGLIPTIN
     Indication: TYPE 2 DIABETES MELLITUS
     Route: 048
     Dates: start: 20180123, end: 20180515
  6. PURSENNID (SENNOSIDE A+B CALCIUM) [Concomitant]
     Active Substance: SENNOSIDES A AND B
     Route: 048
     Dates: start: 20151005, end: 20180904
  7. AMARYL [Concomitant]
     Active Substance: GLIMEPIRIDE
     Route: 048
     Dates: start: 20180320, end: 20180710
  8. NU-LOTAN [Concomitant]
     Active Substance: LOSARTAN POTASSIUM
     Route: 048
     Dates: start: 20160517
  9. FLUVASTATIN SODIUM. [Concomitant]
     Active Substance: FLUVASTATIN SODIUM
     Route: 048
     Dates: start: 20171226
  10. TAKELDA [Concomitant]
     Active Substance: ASPIRIN\LANSOPRAZOLE
     Route: 048
     Dates: start: 20151005
  11. TRAZENTA [Concomitant]
     Active Substance: LINAGLIPTIN
     Indication: TYPE 2 DIABETES MELLITUS
     Route: 048
     Dates: start: 20160125, end: 20170418
  12. GLIMICRON [Concomitant]
     Active Substance: GLICLAZIDE
     Indication: TYPE 2 DIABETES MELLITUS
     Route: 048
     Dates: start: 20180904
  13. AMARYL [Concomitant]
     Active Substance: GLIMEPIRIDE
     Indication: TYPE 2 DIABETES MELLITUS
     Route: 048
     Dates: start: 20160220, end: 20180320
  14. TRULICITY [Concomitant]
     Active Substance: DULAGLUTIDE
     Indication: TYPE 2 DIABETES MELLITUS
     Route: 051
     Dates: start: 20180515
  15. CANAGLIFLOZIN TABLET [Suspect]
     Active Substance: CANAGLIFLOZIN
     Indication: TYPE 2 DIABETES MELLITUS
     Route: 048
     Dates: start: 20160419, end: 20170418
  16. LIVALO [Concomitant]
     Active Substance: PITAVASTATIN CALCIUM
     Route: 048
     Dates: start: 20151005, end: 20171226
  17. NESINA [Concomitant]
     Active Substance: ALOGLIPTIN BENZOATE
     Indication: TYPE 2 DIABETES MELLITUS
     Route: 048
     Dates: start: 20170418, end: 20180123

REACTIONS (4)
  - Acute myocardial infarction [Unknown]
  - Diabetes mellitus inadequate control [Recovering/Resolving]
  - Incorrect dose administered [Unknown]
  - Off label use [Unknown]

NARRATIVE: CASE EVENT DATE: 20160419
